FAERS Safety Report 16085557 (Version 1)
Quarter: 2019Q1

REPORT INFORMATION
  Report Type: Spontaneous
  Country: US (occurrence: US)
  Receive Date: 20190318
  Receipt Date: 20190318
  Transmission Date: 20190418
  Serious: No
  Sender: FDA-Public Use
  Company Number: US-TAKEDA-2019TUS013926

PATIENT
  Sex: Female

DRUGS (2)
  1. COLCRYS [Suspect]
     Active Substance: COLCHICINE
     Indication: PAIN
     Dosage: 0.6 MILLIGRAM, BID
     Route: 048
     Dates: start: 20190308
  2. COLCRYS [Suspect]
     Active Substance: COLCHICINE
     Dosage: 0.6 MILLIGRAM, QD
     Route: 048

REACTIONS (2)
  - Diarrhoea [Unknown]
  - Bowel movement irregularity [Unknown]
